FAERS Safety Report 9235128 (Version 1)
Quarter: 2013Q2

REPORT INFORMATION
  Report Type: Spontaneous
  Country: US (occurrence: US)
  Receive Date: 20130416
  Receipt Date: 20130416
  Transmission Date: 20140414
  Serious: Yes (Other)
  Sender: FDA-Public Use
  Company Number: US-ABBOTT-13P-163-1074104-00

PATIENT
  Sex: Male
  Weight: 96.25 kg

DRUGS (8)
  1. TRILIPIX [Suspect]
     Indication: BLOOD CHOLESTEROL INCREASED
  2. AMLODIPINE [Concomitant]
     Indication: HYPERTENSION
  3. XARELTO [Concomitant]
     Indication: ATRIAL FIBRILLATION
  4. METOPROLOL SUCCINATE [Concomitant]
     Indication: HYPERTENSION
  5. CRESTOR [Concomitant]
     Indication: BLOOD CHOLESTEROL INCREASED
  6. GLYBURIDE [Concomitant]
     Indication: DIABETES MELLITUS
  7. METFORMIN [Concomitant]
     Indication: PRODUCT USED FOR UNKNOWN INDICATION
  8. LISINOPRIL [Concomitant]
     Indication: HYPERTENSION

REACTIONS (2)
  - Atrial fibrillation [Not Recovered/Not Resolved]
  - Myalgia [Not Recovered/Not Resolved]
